FAERS Safety Report 4899569-2 (Version None)
Quarter: 2006Q1

REPORT INFORMATION
  Report Type: 
  Country: None (occurrence: None)
  Receive Date: 20060123
  Receipt Date: 20050121
  Transmission Date: 20060701
  Serious: Yes (Hospitalization)
  Sender: FDA-Public Use
  Company Number: PERC20050007

PATIENT
  Age: 73 Year
  Sex: Male

DRUGS (8)
  1. PERCOCET [Suspect]
     Indication: PAIN
     Dates: start: 20030418, end: 20030506
  2. PRINIVIL [Suspect]
     Indication: HYPERTENSION
     Dosage: PO
     Route: 048
     Dates: start: 20030418, end: 20030512
  3. CLOTRIMAZOLE [Concomitant]
  4. LEVTHYROXINE SODIUM [Concomitant]
  5. NORTRIPTYLINE HCL [Concomitant]
  6. SENNOSIDES [Concomitant]
  7. SIMVASTATIN [Concomitant]
  8. RIAMCINOLONE ACETONIDE [Concomitant]

REACTIONS (3)
  - HYPOGLYCAEMIA [None]
  - SOMNOLENCE [None]
  - SYNCOPE [None]
